FAERS Safety Report 5104256-1 (Version None)
Quarter: 2006Q3

REPORT INFORMATION
  Report Type: 
  Country: None (occurrence: None)
  Receive Date: 20060914
  Receipt Date: 20060906
  Transmission Date: 20061208
  Serious: Yes (Death)
  Sender: FDA-Public Use
  Company Number: US-BRACCO-BDI-008616

PATIENT
  Sex: Male

DRUGS (2)
  1. ISOVUE-128 [Suspect]
     Route: 042
     Dates: start: 20060905, end: 20060905
  2. BARIUM [Concomitant]
     Route: 048
     Dates: start: 20060905, end: 20060905

REACTIONS (5)
  - CONFUSIONAL STATE [None]
  - CYANOSIS [None]
  - NAUSEA [None]
  - RESPIRATORY ARREST [None]
  - RESTLESSNESS [None]
